FAERS Safety Report 19483494 (Version 1)
Quarter: 2021Q3

REPORT INFORMATION
  Report Type: Spontaneous
  Country: NL (occurrence: NL)
  Receive Date: 20210701
  Receipt Date: 20210701
  Transmission Date: 20211014
  Serious: Yes (Hospitalization, Other)
  Sender: FDA-Public Use
  Company Number: NL-PFIZER INC-2021732086

PATIENT
  Age: 70 Year
  Sex: Female

DRUGS (2)
  1. FULVESTRANT. [Suspect]
     Active Substance: FULVESTRANT
     Dosage: 500 MG
  2. PALBOCICLIB [Suspect]
     Active Substance: PALBOCICLIB
     Dosage: 125 MG
     Dates: start: 20180212, end: 20200822

REACTIONS (8)
  - Urinary tract infection [Unknown]
  - Anaemia macrocytic [Unknown]
  - Chills [Unknown]
  - Urosepsis [Unknown]
  - Hyponatraemia [Unknown]
  - Pyrexia [Unknown]
  - Renal impairment [Unknown]
  - Dysuria [Unknown]

NARRATIVE: CASE EVENT DATE: 20180830
